FAERS Safety Report 9380286 (Version 1)
Quarter: 2013Q3

REPORT INFORMATION
  Report Type: Spontaneous
  Country: US (occurrence: None)
  Receive Date: 20130701
  Receipt Date: 20130701
  Transmission Date: 20140515
  Serious: Yes (Other)
  Sender: FDA-Public Use
  Company Number: None

PATIENT
  Age: 29 Year
  Sex: Male

DRUGS (4)
  1. RISPERDAL [Suspect]
     Route: 048
     Dates: start: 2004
  2. RISPERDAL [Suspect]
     Indication: CONVULSION
     Route: 048
     Dates: start: 2004
  3. RISPERDAL [Suspect]
     Indication: ABNORMAL BEHAVIOUR
     Route: 048
     Dates: start: 2004
  4. RISPERDAL [Suspect]
     Indication: ENCEPHALOPATHY
     Route: 048
     Dates: start: 2004

REACTIONS (3)
  - Social avoidant behaviour [None]
  - Lethargy [None]
  - Product substitution issue [None]
